FAERS Safety Report 7661325-X (Version None)
Quarter: 2011Q3

REPORT INFORMATION
  Report Type: 
  Country: None (occurrence: None)
  Receive Date: 20110805
  Receipt Date: 20101006
  Transmission Date: 20111222
  Serious: No
  Sender: FDA-Public Use
  Company Number: US-ABBOTT-10P-163-0676068-00

PATIENT
  Sex: Female

DRUGS (5)
  1. NIASPAN [Suspect]
     Dosage: QHS
     Dates: start: 20101004
  2. ASPIRIN [Concomitant]
     Indication: PRODUCT USED FOR UNKNOWN INDICATION
     Dosage: 30MIN BEFORE NIASPAN COATED
  3. ASPIRIN [Concomitant]
  4. NIASPAN [Suspect]
     Indication: PRODUCT USED FOR UNKNOWN INDICATION
     Dosage: QHS
     Dates: start: 20100901, end: 20101004
  5. ASPIRIN [Concomitant]
     Dosage: DECREASED DUE TO GI UPSET

REACTIONS (3)
  - FLUSHING [None]
  - PAIN OF SKIN [None]
  - ABDOMINAL DISCOMFORT [None]
